FAERS Safety Report 7001547-4 (Version None)
Quarter: 2010Q3

REPORT INFORMATION
  Report Type: 
  Country: None (occurrence: None)
  Receive Date: 20100920
  Receipt Date: 20100917
  Transmission Date: 20110219
  Serious: Yes (Death)
  Sender: FDA-Public Use
  Company Number: PHHO2010DE08039

PATIENT
  Sex: Female
  Weight: 105 kg

DRUGS (1)
  1. ANASTROZOLE COMP-ANA+ [Suspect]
     Indication: BREAST CANCER
     Dosage: 10 MG
     Route: 048

REACTIONS (1)
  - DEATH [None]
